FAERS Safety Report 13622510 (Version 2)
Quarter: 2017Q4

REPORT INFORMATION
  Report Type: Report from Study
  Country: US (occurrence: US)
  Receive Date: 20170607
  Receipt Date: 20171204
  Transmission Date: 20180320
  Serious: No
  Sender: FDA-Public Use
  Company Number: PHEH2017US016015

PATIENT
  Sex: Male
  Weight: 71.8 kg

DRUGS (1)
  1. ILARIS [Suspect]
     Active Substance: CANAKINUMAB
     Indication: PRODUCT USED FOR UNKNOWN INDICATION
     Dosage: 150 MG, EVERY 8 WEEKS
     Route: 058
     Dates: start: 2015

REACTIONS (4)
  - Anxiety [Unknown]
  - Depression [Unknown]
  - Injection site pain [Unknown]
  - Affective disorder [Not Recovered/Not Resolved]
